FAERS Safety Report 9827109 (Version 1)
Quarter: 2014Q1

REPORT INFORMATION
  Report Type: Spontaneous
  Country: US (occurrence: US)
  Receive Date: 20140117
  Receipt Date: 20140117
  Transmission Date: 20141002
  Serious: No
  Sender: FDA-Public Use
  Company Number: US-GLAXOSMITHKLINE-A1037204A

PATIENT
  Age: 64 Year
  Sex: Female

DRUGS (6)
  1. PROMACTA [Suspect]
     Indication: THROMBOCYTOPENIA
     Dosage: 50MG PER DAY
     Route: 048
     Dates: start: 20120103
  2. CALCIUM [Concomitant]
  3. WARFARIN [Concomitant]
  4. LASIX [Concomitant]
  5. ANTIDEPRESSANT [Concomitant]
  6. AMBIEN [Concomitant]

REACTIONS (3)
  - Eructation [Unknown]
  - Vomiting [Unknown]
  - Gastroenteritis viral [Unknown]
